FAERS Safety Report 5092695-7 (Version None)
Quarter: 2006Q3

REPORT INFORMATION
  Report Type: 
  Country: None (occurrence: None)
  Receive Date: 20060828
  Receipt Date: 20060815
  Transmission Date: 20061208
  Serious: Yes (Hospitalization, Other)
  Sender: FDA-Public Use
  Company Number: 2006080727

PATIENT
  Age: 62 Year
  Sex: Male
  Weight: 113.3993 kg

DRUGS (1)
  1. BEXTRA [Suspect]
     Indication: ARTHRITIS
     Dosage: 20 MG (20 MG, 1 IN 1 D);
     Dates: start: 20020525

REACTIONS (4)
  - CEREBROVASCULAR ACCIDENT [None]
  - EMOTIONAL DISORDER [None]
  - MENTAL DISORDER [None]
  - TRANSIENT ISCHAEMIC ATTACK [None]
